FAERS Safety Report 8817000 (Version 1)
Quarter: 2012Q4

REPORT INFORMATION
  Report Type: Spontaneous
  Country: US (occurrence: None)
  Receive Date: 20121003
  Receipt Date: 20121003
  Transmission Date: 20130627
  Serious: No
  Sender: FDA-Public Use
  Company Number: None

PATIENT
  Age: 81 Year
  Sex: Male
  Weight: 89.5 kg

DRUGS (1)
  1. AXITINIB [Suspect]
     Route: 048
     Dates: start: 20120720, end: 20120907

REACTIONS (5)
  - Anxiety [None]
  - Hypertension [None]
  - Depression [None]
  - Dyspnoea [None]
  - Confusional state [None]
